FAERS Safety Report 20566839 (Version 1)
Quarter: 2022Q1

REPORT INFORMATION
  Report Type: Spontaneous
  Country: US (occurrence: None)
  Receive Date: 20220307
  Receipt Date: 20220307
  Transmission Date: 20220423
  Serious: Yes (Hospitalization)
  Sender: FDA-Public Use
  Company Number: None

PATIENT
  Age: 68 Year
  Sex: Female

DRUGS (6)
  1. PROLIA [Suspect]
     Active Substance: DENOSUMAB
     Indication: Osteoporosis
     Dosage: OTHER FREQUENCY : EVERY 6 MONTHS;?
     Route: 058
     Dates: start: 20211007
  2. CALCIUM\VITAMIN D [Concomitant]
     Active Substance: CALCIUM\VITAMIN D
  3. CENTRUM MULTI-VITAMIN [Concomitant]
  4. VITAMIN C [Concomitant]
     Active Substance: ASCORBIC ACID
  5. BRIMONIDINE 0.2% OPHTH SOLUTION [Concomitant]
  6. TIMOLOL MALEATE 0.5% OPHTH SOLUTION [Concomitant]

REACTIONS (2)
  - Syncope [None]
  - Injection related reaction [None]

NARRATIVE: CASE EVENT DATE: 20211009
